APPROVED DRUG PRODUCT: STERILE WATER FOR INJECTION
Active Ingredient: STERILE WATER FOR INJECTION
Strength: 100% (20ML)
Dosage Form/Route: LIQUID;N/A
Application: A206369 | Product #002
Applicant: HIKMA PHARMACEUTICALS USA INC
Approved: Sep 2, 2015 | RLD: No | RS: No | Type: DISCN